FAERS Safety Report 17622242 (Version 1)
Quarter: 2020Q2

REPORT INFORMATION
  Report Type: Report from Study
  Country: IT (occurrence: IT)
  Receive Date: 20200403
  Receipt Date: 20200403
  Transmission Date: 20200713
  Serious: Yes (Other)
  Sender: FDA-Public Use
  Company Number: IT-PFIZER INC-2020138294

PATIENT
  Age: 57 Year
  Sex: Female

DRUGS (2)
  1. MUNDOSON [Concomitant]
     Indication: PRURITUS
     Dosage: 1 DF, UNK
     Route: 003
     Dates: start: 20191216
  2. LYRICA [Suspect]
     Active Substance: PREGABALIN
     Indication: PRURITUS
     Dosage: 1 DF, 1X/DAY
     Route: 048
     Dates: start: 20191226, end: 20191228

REACTIONS (2)
  - Rash [Recovering/Resolving]
  - Rash pruritic [Recovering/Resolving]

NARRATIVE: CASE EVENT DATE: 20191228
